FAERS Safety Report 8862070 (Version 2)
Quarter: 2013Q2

REPORT INFORMATION
  Report Type: Spontaneous
  Country: JP (occurrence: JP)
  Receive Date: 20121026
  Receipt Date: 20130521
  Transmission Date: 20140414
  Serious: Yes (Other)
  Sender: FDA-Public Use
  Company Number: JP-ELI_LILLY_AND_COMPANY-JP201209001958

PATIENT
  Age: 75 Year
  Sex: Male
  Weight: 51.5 kg

DRUGS (6)
  1. GEMZAR [Suspect]
     Indication: PANCREATIC CARCINOMA
     Dosage: 1 G, UNK
     Route: 042
     Dates: start: 20120823, end: 20120830
  2. GASMOTIN [Concomitant]
     Dosage: UNK, TID
     Route: 048
  3. BERIZYM [Concomitant]
     Dosage: UNK, TID
     Route: 048
  4. GRANISETRON HYDROCHLORIDE [Concomitant]
     Dosage: UNK
     Route: 042
  5. LACTEC [Concomitant]
     Route: 042
  6. SOLITA-T3 [Concomitant]
     Dosage: UNK
     Route: 042

REACTIONS (2)
  - Colitis [Recovering/Resolving]
  - Hepatic function abnormal [Recovering/Resolving]
